FAERS Safety Report 4552377-4 (Version None)
Quarter: 2005Q1

REPORT INFORMATION
  Report Type: 
  Country: None (occurrence: None)
  Receive Date: 20050114
  Receipt Date: 20040325
  Transmission Date: 20050727
  Serious: No
  Sender: FDA-Public Use
  Company Number: US-GLAXOSMITHKLINE-A0504574A

PATIENT
  Age: 52 Year
  Sex: Female

DRUGS (3)
  1. IMITREX [Suspect]
     Indication: MIGRAINE
     Dosage: 1INJ AS REQUIRED
     Route: 058
     Dates: start: 19940101, end: 19950101
  2. IMITREX [Suspect]
     Dosage: 50MG AS REQUIRED
     Route: 048
     Dates: start: 19950101
  3. IBUPROFEN [Concomitant]

REACTIONS (1)
  - CARDIAC MURMUR [None]
